FAERS Safety Report 13012198 (Version 1)
Quarter: 2016Q4

REPORT INFORMATION
  Report Type: Report from Study
  Country: US (occurrence: US)
  Receive Date: 20161209
  Receipt Date: 20161209
  Transmission Date: 20170207
  Serious: Yes (Hospitalization)
  Sender: FDA-Public Use
  Company Number: US-TAIHO ONCOLOGY INC-EU-2016-03113

PATIENT
  Sex: Male
  Weight: 86.26 kg

DRUGS (7)
  1. FUROSEMIDE. [Concomitant]
     Active Substance: FUROSEMIDE
     Dosage: NI
  2. POTASSIUM [Concomitant]
     Active Substance: POTASSIUM
     Dates: end: 2016
  3. LONSURF [Suspect]
     Active Substance: TIPIRACIL HYDROCHLORIDE\TRIFLURIDINE
     Indication: COLORECTAL CANCER
     Dosage: DOSE WAS REDUCED FROM 70 MG BID TO 60 MG BID AT SOME POINT.
     Route: 048
     Dates: start: 20161017
  4. ELIQUIS [Concomitant]
     Active Substance: APIXABAN
     Dosage: NI
  5. MAGNESIUM [Concomitant]
     Active Substance: MAGNESIUM
     Dates: end: 2016
  6. ACETYLSALICYLIC ACID [Concomitant]
     Active Substance: ASPIRIN
     Dosage: LOW-DOSE
  7. METOPROLOL TARTRATE. [Concomitant]
     Active Substance: METOPROLOL TARTRATE
     Dosage: NI

REACTIONS (6)
  - Pneumoperitoneum [Unknown]
  - Dysphonia [Unknown]
  - Productive cough [Unknown]
  - Vomiting [Unknown]
  - Cough [Unknown]
  - Diarrhoea [Unknown]

NARRATIVE: CASE EVENT DATE: 2016
